FAERS Safety Report 8820356 (Version 1)
Quarter: 2012Q4

REPORT INFORMATION
  Report Type: 
  Country: US (occurrence: US)
  Receive Date: 20121001
  Receipt Date: 20121001
  Transmission Date: 20130627
  Serious: No
  Sender: FDA-Public Use
  Company Number: US-009507513-1209USA003060

PATIENT
  Sex: Female

DRUGS (12)
  1. VICTRELIS [Suspect]
     Dosage: 4 capsules, with food (meal/light snack)
     Route: 048
  2. PEGINTRON [Suspect]
  3. REBETOL [Suspect]
  4. CATAPRES [Concomitant]
     Dosage: 0.2 mg, UNK
  5. BYSTOLIC [Concomitant]
     Dosage: 2.5 mg, UNK
  6. MONOPRIL [Concomitant]
     Dosage: 10 mg, UNK
  7. SYNTHROID [Concomitant]
     Dosage: 137 Microgram, UNK
  8. GLUCOPHAGE [Concomitant]
     Dosage: 500 mg, UNK
  9. VITAMIN D (UNSPECIFIED) [Concomitant]
     Dosage: 1000 UNITS
  10. CYANOCOBALAMIN [Concomitant]
     Dosage: 1000 TR
  11. PRAVASTATIN SODIUM [Concomitant]
     Dosage: 10 mg, UNK
  12. HEMAX (CARBONYL IRON) [Concomitant]
     Dosage: HEMAX SR

REACTIONS (6)
  - Crying [Unknown]
  - Dissociation [Unknown]
  - Hepatic pain [Unknown]
  - Nausea [Unknown]
  - Depressive symptom [Unknown]
  - Depressed mood [Unknown]
